FAERS Safety Report 9924333 (Version 3)
Quarter: 2014Q2

REPORT INFORMATION
  Report Type: Spontaneous
  Country: US (occurrence: US)
  Receive Date: 20140226
  Receipt Date: 20140408
  Transmission Date: 20141212
  Serious: No
  Sender: FDA-Public Use
  Company Number: US-009507513-1402USA011460

PATIENT
  Sex: Male

DRUGS (3)
  1. PEGINTRON [Suspect]
     Indication: HEPATITIS C
     Dosage: REDIPEN, STRENGTH: 150MCG/0.5ML, 0.50 ML, QW
     Route: 058
     Dates: start: 20140207
  2. REBETOL [Suspect]
     Indication: HEPATITIS C
     Dosage: 3 DF, BID, 600-600MG (28)-MG (28) 1
     Route: 048
     Dates: start: 20140207
  3. SOVALDI [Concomitant]
     Dosage: 400 MG, QD

REACTIONS (5)
  - Injection site erythema [Recovered/Resolved]
  - Emotional disorder [Recovering/Resolving]
  - Nausea [Recovering/Resolving]
  - Agitation [Unknown]
  - Neutropenia [Unknown]
